FAERS Safety Report 5157768-9 (Version None)
Quarter: 2006Q4

REPORT INFORMATION
  Report Type: 
  Country: None (occurrence: None)
  Receive Date: 20061115
  Receipt Date: 20061030
  Transmission Date: 20070319
  Serious: Yes (Hospitalization)
  Sender: FDA-Public Use
  Company Number: 8020019

PATIENT
  Age: 38 Year
  Sex: Female

DRUGS (3)
  1. KEPPRA [Suspect]
     Indication: EPILEPSY
     Dosage: 500 MG/D PO
     Route: 048
     Dates: start: 20060701, end: 20060901
  2. KEPPRA [Suspect]
     Indication: EPILEPSY
     Dosage: 1000 MG/D PO
     Route: 048
     Dates: start: 20060901
  3. LAMICTAL [Concomitant]

REACTIONS (4)
  - OVERDOSE [None]
  - PYELONEPHRITIS [None]
  - RENAL FAILURE [None]
  - THROMBOCYTOPENIA [None]
